FAERS Safety Report 18136500 (Version 2)
Quarter: 2020Q3

REPORT INFORMATION
  Report Type: Report from Study
  Country: CN (occurrence: CN)
  Receive Date: 20200811
  Receipt Date: 20200819
  Transmission Date: 20201103
  Serious: Yes (Other)
  Sender: FDA-Public Use
  Company Number: CN-ASTRAZENECA-2020SE99351

PATIENT
  Age: 69 Year
  Sex: Female

DRUGS (3)
  1. STEREOTACTIC BODY RADIOTHERAPY [Suspect]
     Active Substance: RADIATION THERAPY
     Indication: NON-SMALL CELL LUNG CANCER
     Dosage: 60 GY/12 FRACTIONS, INTENSITY?MODULATED RADIOTHERAPY AND 3?DIMENSIONAL CONFORMAL RADIATION THERA...
     Route: 065
  2. OSIMERTINIB. [Suspect]
     Active Substance: OSIMERTINIB
     Indication: NON-SMALL CELL LUNG CANCER STAGE IV
     Dosage: 80 MG DAILY IN COMBINATION WITH RADIOTHERAPY
     Route: 048
  3. OSIMERTINIB. [Suspect]
     Active Substance: OSIMERTINIB
     Indication: NON-SMALL CELL LUNG CANCER STAGE IV
     Route: 048
     Dates: start: 201811

REACTIONS (1)
  - Radiation pneumonitis [Recovering/Resolving]
